FAERS Safety Report 5044964-4 (Version None)
Quarter: 2006Q3

REPORT INFORMATION
  Report Type: 
  Country: None (occurrence: None)
  Receive Date: 20060705
  Receipt Date: 20060613
  Transmission Date: 20061208
  Serious: Yes (Hospitalization)
  Sender: FDA-Public Use
  Company Number: US200604001201

PATIENT
  Age: 58 Year
  Sex: Male

DRUGS (2)
  1. HUMALOG PEN [Suspect]
     Indication: DIABETES MELLITUS
     Dosage: PER SLIDING SCALE  PER FOOD INTAKE/MEALS
  2. LANTUS [Concomitant]

REACTIONS (4)
  - BLOOD GLUCOSE INCREASED [None]
  - MEDICAL DEVICE COMPLICATION [None]
  - PHARMACEUTICAL PRODUCT COMPLAINT [None]
  - STREPTOCOCCAL INFECTION [None]
